FAERS Safety Report 6552822-9 (Version None)
Quarter: 2010Q1

REPORT INFORMATION
  Report Type: 
  Country: None (occurrence: None)
  Receive Date: 20100121
  Receipt Date: 20090608
  Transmission Date: 20100710
  Serious: No
  Sender: FDA-Public Use
  Company Number: D01200903859

PATIENT
  Age: 38 Year
  Sex: Male

DRUGS (3)
  1. MULTAQ [Suspect]
     Dosage: 400 MG BID ORAL
     Route: 048
     Dates: start: 20090511, end: 20090520
  2. (ATORVASTATIN) - TABLET - 40 MG [Suspect]
     Dosage: 40 MG BID ORAL
     Route: 048
     Dates: start: 20090511, end: 20090520
  3. MULTAQ [Suspect]
     Dosage: 400 MG BID ORAL
     Route: 048
     Dates: start: 20090602, end: 20090607

REACTIONS (13)
  - 5'NUCLEOTIDASE INCREASED [None]
  - ABDOMINAL PAIN UPPER [None]
  - ALANINE AMINOTRANSFERASE INCREASED [None]
  - ASPARTATE AMINOTRANSFERASE INCREASED [None]
  - BILIRUBIN CONJUGATED INCREASED [None]
  - BLOOD ALKALINE PHOSPHATASE INCREASED [None]
  - BLOOD BILIRUBIN INCREASED [None]
  - CYTOLYTIC HEPATITIS [None]
  - DIARRHOEA [None]
  - GAMMA-GLUTAMYLTRANSFERASE INCREASED [None]
  - HEPATITIS [None]
  - MURPHY'S SIGN POSITIVE [None]
  - STAPHYLOCOCCAL INFECTION [None]
